FAERS Safety Report 16324483 (Version 1)
Quarter: 2019Q2

REPORT INFORMATION
  Report Type: Spontaneous
  Country: US (occurrence: US)
  Receive Date: 20190516
  Receipt Date: 20190516
  Transmission Date: 20190711
  Serious: Yes (Hospitalization)
  Sender: FDA-Public Use
  Company Number: None

PATIENT
  Age: 16 Year
  Sex: Male

DRUGS (3)
  1. TOBI PODHALER [Suspect]
     Active Substance: TOBRAMYCIN
     Indication: INFECTIVE PULMONARY EXACERBATION OF CYSTIC FIBROSIS
     Route: 048
     Dates: start: 20180125
  2. CREON, VIT D3, AQUADEKS, MONTELUKAST, PULMOZYME, DEKAS [Concomitant]
  3. SCANDISHAKE POW, AZITHROYCIN, FLOVENT [Concomitant]

REACTIONS (2)
  - Dyspepsia [None]
  - Respiratory disorder [None]

NARRATIVE: CASE EVENT DATE: 20190501
